FAERS Safety Report 20356468 (Version 3)
Quarter: 2022Q1

REPORT INFORMATION
  Report Type: Spontaneous
  Country: GB (occurrence: GB)
  Receive Date: 20220120
  Receipt Date: 20220318
  Transmission Date: 20220423
  Serious: Yes (Death, Life-Threatening, Hospitalization, Disabling, Other)
  Sender: FDA-Public Use
  Company Number: None

PATIENT
  Age: 88 Year
  Sex: Male

DRUGS (8)
  1. AMLODIPINE [Suspect]
     Active Substance: AMLODIPINE BESYLATE
     Route: 048
     Dates: end: 202111
  2. FUROSEMIDE [Suspect]
     Active Substance: FUROSEMIDE
     Dosage: MORNING
     Route: 048
     Dates: end: 202111
  3. ISOSORBIDE MONONITRATE [Suspect]
     Active Substance: ISOSORBIDE MONONITRATE
     Dosage: 60 MILLIGRAM
     Route: 048
     Dates: end: 202111
  4. OMEPRAZOLE [Suspect]
     Active Substance: OMEPRAZOLE
     Indication: Duodenal ulcer
     Route: 048
     Dates: end: 202111
  5. ASPIRIN [Concomitant]
     Active Substance: ASPIRIN
  6. ATORVASTATIN CALCIUM [Concomitant]
     Active Substance: ATORVASTATIN CALCIUM
  7. NITROGLYCERIN [Concomitant]
     Active Substance: NITROGLYCERIN
  8. BISOPROLOL [Concomitant]
     Active Substance: BISOPROLOL

REACTIONS (8)
  - Hypomagnesaemia [Unknown]
  - Fall [Unknown]
  - Overdose [Unknown]
  - Hypocalcaemia [Unknown]
  - Hypokalaemia [Unknown]
  - Product monitoring error [Unknown]
  - Cervical vertebral fracture [Unknown]
  - Pseudomonal sepsis [Fatal]

NARRATIVE: CASE EVENT DATE: 20210801
